FAERS Safety Report 7270930-4 (Version None)
Quarter: 2011Q1

REPORT INFORMATION
  Report Type: 
  Country: None (occurrence: None)
  Receive Date: 20110202
  Receipt Date: 20110120
  Transmission Date: 20110831
  Serious: Yes (Other)
  Sender: FDA-Public Use
  Company Number: DE-MYLANLABS-2011S1001711

PATIENT
  Age: 12 Year
  Sex: Male

DRUGS (5)
  1. METHOTREXATE [Suspect]
     Indication: BONE SARCOMA
     Dosage: 12 G/M2
     Route: 065
  2. DOXORUBICIN [Suspect]
     Indication: BONE SARCOMA
     Route: 065
  3. CISPLATIN [Suspect]
     Indication: BONE SARCOMA
     Route: 065
  4. IFOSFAMIDE [Suspect]
     Indication: BONE SARCOMA
     Route: 065
  5. ETOPOSIDE [Suspect]
     Indication: BONE SARCOMA
     Route: 065

REACTIONS (5)
  - HEPATOTOXICITY [None]
  - COAGULOPATHY [None]
  - BONE MARROW FAILURE [None]
  - RENAL FAILURE [None]
  - DRUG CLEARANCE DECREASED [None]
